FAERS Safety Report 10645873 (Version 1)
Quarter: 2014Q4

REPORT INFORMATION
  Report Type: Spontaneous
  Country: DE (occurrence: DE)
  Receive Date: 20141211
  Receipt Date: 20141211
  Transmission Date: 20150529
  Serious: Yes (Other)
  Sender: FDA-Public Use
  Company Number: PHHY2014DE157593

PATIENT
  Age: 68 Year
  Sex: Male

DRUGS (1)
  1. TASIGNA [Suspect]
     Active Substance: NILOTINIB
     Indication: PRODUCT USED FOR UNKNOWN INDICATION
     Dosage: 600 MG (2X300MG), QD
     Route: 065
     Dates: start: 201302

REACTIONS (2)
  - Myeloproliferative disorder [Unknown]
  - Gene mutation [Unknown]

NARRATIVE: CASE EVENT DATE: 201409
